FAERS Safety Report 20934765 (Version 3)
Quarter: 2022Q3

REPORT INFORMATION
  Report Type: Spontaneous
  Country: PT (occurrence: PT)
  Receive Date: 20220608
  Receipt Date: 20220922
  Transmission Date: 20221027
  Serious: Yes (Other)
  Sender: FDA-Public Use
  Company Number: PT-GILEAD-2022-0584859

PATIENT
  Sex: Female

DRUGS (1)
  1. YESCARTA [Suspect]
     Active Substance: AXICABTAGENE CILOLEUCEL
     Indication: Product used for unknown indication
     Dosage: UNK
     Route: 050
     Dates: start: 20200904

REACTIONS (3)
  - Abortion [Recovered/Resolved]
  - Maternal exposure timing unspecified [Recovered/Resolved]
  - Exposure via body fluid [Recovered/Resolved]
